FAERS Safety Report 4426576-6 (Version None)
Quarter: 2004Q3

REPORT INFORMATION
  Report Type: 
  Country: None (occurrence: None)
  Receive Date: 20040812
  Receipt Date: 20040812
  Transmission Date: 20050211
  Serious: Yes (Death)
  Sender: FDA-Public Use
  Company Number: None

PATIENT
  Sex: Female
  Weight: 35.3806 kg

DRUGS (2)
  1. CIPRO [Suspect]
     Indication: BRONCHITIS
     Dosage: 500 MG TWICE A DA OTHER
     Dates: start: 20020523, end: 20020525
  2. CIPRO [Suspect]
     Indication: PNEUMONIA
     Dosage: 500 MG TWICE A DA OTHER
     Dates: start: 20020523, end: 20020525

REACTIONS (1)
  - SUDDEN DEATH [None]
